FAERS Safety Report 18708762 (Version 5)
Quarter: 2021Q2

REPORT INFORMATION
  Report Type: Report from Study
  Country: US (occurrence: US)
  Receive Date: 20210106
  Receipt Date: 20210628
  Transmission Date: 20210717
  Serious: Yes (Disabling, Other)
  Sender: FDA-Public Use
  Company Number: NVSC2021US002129

PATIENT
  Age: 29 Year
  Sex: Female
  Weight: 99.6 kg

DRUGS (26)
  1. METHOCARBAMOL. [Concomitant]
     Active Substance: METHOCARBAMOL
     Indication: PRODUCT USED FOR UNKNOWN INDICATION
     Dosage: 1 DF, QD
     Route: 048
  2. ALLEGRA?D 24 HOUR [Concomitant]
     Active Substance: FEXOFENADINE HYDROCHLORIDE\PSEUDOEPHEDRINE HYDROCHLORIDE
     Indication: PRODUCT USED FOR UNKNOWN INDICATION
     Dosage: 180?240 MG
     Route: 048
  3. VITAMIN D3 [Concomitant]
     Active Substance: CHOLECALCIFEROL
     Indication: PRODUCT USED FOR UNKNOWN INDICATION
     Dosage: 3000 IU, QD
     Route: 048
  4. DOCUSATE SODIUM. [Concomitant]
     Active Substance: DOCUSATE SODIUM
     Indication: PRODUCT USED FOR UNKNOWN INDICATION
     Dosage: 1 DF,QAM
     Route: 048
  5. FROVATRIPTAN SUCCINATE. [Concomitant]
     Active Substance: FROVATRIPTAN SUCCINATE
     Indication: PRODUCT USED FOR UNKNOWN INDICATION
     Dosage: 1 DF, QD AND 14 HOURS LATER IF NEEDED
     Route: 048
  6. KESIMPTA [Suspect]
     Active Substance: OFATUMUMAB
     Dosage: 20 MG, QMO
     Route: 058
     Dates: start: 20201210, end: 20210210
  7. LYRICA [Concomitant]
     Active Substance: PREGABALIN
     Indication: PRODUCT USED FOR UNKNOWN INDICATION
     Dosage: 1 DF, BID
     Route: 048
  8. BUTRANS [Concomitant]
     Active Substance: BUPRENORPHINE
     Indication: PRODUCT USED FOR UNKNOWN INDICATION
     Dosage: 20 UG/HR, QW
     Route: 065
  9. GABAPENTIN. [Concomitant]
     Active Substance: GABAPENTIN
     Indication: PRODUCT USED FOR UNKNOWN INDICATION
     Dosage: 1 DF QAM
     Route: 048
  10. SOLU?MEDROL [Concomitant]
     Active Substance: METHYLPREDNISOLONE SODIUM SUCCINATE
     Dosage: UNK, QDX2 DAYS, INFUSE OVER 1.5 ?2 HOURS AS TOLERATED
     Route: 042
  11. NADOLOL. [Concomitant]
     Active Substance: NADOLOL
     Indication: PRODUCT USED FOR UNKNOWN INDICATION
     Dosage: 1 DF, QD
     Route: 048
  12. TRAZODONE HYDROCHLORIDE. [Concomitant]
     Active Substance: TRAZODONE HYDROCHLORIDE
     Indication: PRODUCT USED FOR UNKNOWN INDICATION
     Dosage: 1 DF (HS)
     Route: 048
  13. KESIMPTA [Suspect]
     Active Substance: OFATUMUMAB
     Indication: RELAPSING MULTIPLE SCLEROSIS
     Dosage: 20 MG, QW(AT 0,1,2)
     Route: 058
  14. FLONASE [Concomitant]
     Active Substance: FLUTICASONE PROPIONATE
     Indication: PRODUCT USED FOR UNKNOWN INDICATION
     Dosage: 50 UG/ACT), BID 2 SPRAY PER NOSTRIL
     Route: 045
  15. GABAPENTIN. [Concomitant]
     Active Substance: GABAPENTIN
     Dosage: 2 DF QHS
     Route: 048
  16. SOLU?MEDROL [Concomitant]
     Active Substance: METHYLPREDNISOLONE SODIUM SUCCINATE
     Indication: PRODUCT USED FOR UNKNOWN INDICATION
     Dosage: UNK, QDX3 DAYS, INFUSE OVER 1.5 ?2 HOURS AS TOLERATED
     Route: 042
  17. SOLU?MEDROL [Concomitant]
     Active Substance: METHYLPREDNISOLONE SODIUM SUCCINATE
     Dosage: UNK, QDX5 DAYS, INFUSE OVER 1.5 ?2 HOURS AS TOLERATED
     Route: 042
  18. RITUXAN [Concomitant]
     Active Substance: RITUXIMAB
     Indication: PRODUCT USED FOR UNKNOWN INDICATION
     Dosage: 500 MG(EVERY 6 MONTHS)
     Route: 065
  19. PRAZOSIN HCL [Concomitant]
     Active Substance: PRAZOSIN HYDROCHLORIDE
     Indication: PRODUCT USED FOR UNKNOWN INDICATION
     Dosage: 1 MG, QHS(3 )
     Route: 048
  20. ONDANSETRON HCL [Concomitant]
     Active Substance: ONDANSETRON HYDROCHLORIDE
     Indication: PRODUCT USED FOR UNKNOWN INDICATION
     Dosage: 1 DF, TID
     Route: 048
  21. IBUPROFEN. [Concomitant]
     Active Substance: IBUPROFEN
     Indication: PRODUCT USED FOR UNKNOWN INDICATION
     Dosage: 1 DF, BID
     Route: 048
  22. VALIUM [Concomitant]
     Active Substance: DIAZEPAM
     Indication: PRODUCT USED FOR UNKNOWN INDICATION
     Dosage: 1 DF, BID(POST STEROID TIMES 5 DAYS)
     Route: 048
  23. BACLOFEN. [Concomitant]
     Active Substance: BACLOFEN
     Indication: PRODUCT USED FOR UNKNOWN INDICATION
     Dosage: 0.5 DF BID
     Route: 048
  24. DOCUSATE SODIUM. [Concomitant]
     Active Substance: DOCUSATE SODIUM
     Dosage: 3 DF, QHS
     Route: 048
  25. ZOLOFT [Concomitant]
     Active Substance: SERTRALINE HYDROCHLORIDE
     Indication: PRODUCT USED FOR UNKNOWN INDICATION
     Dosage: 1 DF, QD
     Route: 048
  26. VALIUM [Concomitant]
     Active Substance: DIAZEPAM
     Dosage: 1?2 30 MINUTES BEFORE MRI
     Route: 048

REACTIONS (55)
  - Fatigue [Unknown]
  - Arthralgia [Unknown]
  - Feeling abnormal [Unknown]
  - Decreased appetite [Unknown]
  - Fall [Unknown]
  - Paranoia [Unknown]
  - Muscle spasms [Unknown]
  - Vision blurred [Unknown]
  - Dysphagia [Unknown]
  - Temperature intolerance [Unknown]
  - Dyspepsia [Unknown]
  - Photosensitivity reaction [Unknown]
  - Poor quality sleep [Not Recovered/Not Resolved]
  - Mobility decreased [Unknown]
  - Back pain [Unknown]
  - Nightmare [Not Recovered/Not Resolved]
  - Emotional disorder [Unknown]
  - Hypoaesthesia [Unknown]
  - Memory impairment [Unknown]
  - Postural orthostatic tachycardia syndrome [Unknown]
  - Diplopia [Unknown]
  - Bladder dysfunction [Unknown]
  - Psychotic disorder [Unknown]
  - Balance disorder [Unknown]
  - Neuralgia [Unknown]
  - Asthenia [Unknown]
  - Depression [Unknown]
  - Eye pain [Unknown]
  - Pain in extremity [Unknown]
  - Loss of consciousness [Unknown]
  - Photopsia [Unknown]
  - Muscular weakness [Unknown]
  - Hyperaesthesia [Unknown]
  - Migraine [Unknown]
  - Heart rate irregular [Unknown]
  - Nausea [Not Recovered/Not Resolved]
  - Burning feet syndrome [Unknown]
  - Neck pain [Unknown]
  - Contusion [Unknown]
  - Pain [Not Recovered/Not Resolved]
  - Paraesthesia [Unknown]
  - Syncope [Unknown]
  - Dysarthria [Unknown]
  - Night sweats [Unknown]
  - Snoring [Unknown]
  - Headache [Not Recovered/Not Resolved]
  - Relapsing-remitting multiple sclerosis [Unknown]
  - Dizziness [Unknown]
  - Anxiety [Not Recovered/Not Resolved]
  - Hyperacusis [Unknown]
  - Drug intolerance [Unknown]
  - Disturbance in attention [Unknown]
  - Tinnitus [Unknown]
  - Dry eye [Unknown]
  - Dry mouth [Unknown]

NARRATIVE: CASE EVENT DATE: 20201211
